FAERS Safety Report 10474730 (Version 2)
Quarter: 2014Q4

REPORT INFORMATION
  Report Type: Report from Study
  Country: US (occurrence: US)
  Receive Date: 20140925
  Receipt Date: 20141126
  Transmission Date: 20150528
  Serious: Yes (Disabling, Other)
  Sender: FDA-Public Use
  Company Number: US-AMGEN-USASP2014072798

PATIENT
  Age: 73 Year
  Sex: Male

DRUGS (1)
  1. SENSIPAR [Suspect]
     Active Substance: CINACALCET HYDROCHLORIDE
     Indication: HYPERPARATHYROIDISM SECONDARY
     Dosage: 60 MG, QD
     Route: 048
     Dates: start: 20140924

REACTIONS (3)
  - Dizziness [Recovered/Resolved]
  - Asthenia [Recovered/Resolved]
  - Diabetes mellitus [Unknown]
